FAERS Safety Report 11167593 (Version 2)
Quarter: 2015Q2

REPORT INFORMATION
  Report Type: Spontaneous
  Country: BR (occurrence: BR)
  Receive Date: 20150605
  Receipt Date: 20150610
  Transmission Date: 20150821
  Serious: Yes (Other)
  Sender: FDA-Public Use
  Company Number: BR-PFIZER INC-2015186068

PATIENT
  Age: 65 Year
  Sex: Male
  Weight: 91 kg

DRUGS (3)
  1. BRIMONIDINE [Concomitant]
     Active Substance: BRIMONIDINE\BRIMONIDINE TARTRATE
     Indication: GLAUCOMA
     Dosage: ONE DROP IN BOTH EYES, 2X/DAY (EVERY 12 HOURS)
     Dates: start: 201412
  2. XALATAN [Suspect]
     Active Substance: LATANOPROST
     Indication: GLAUCOMA
     Dosage: ONE DROP IN BOTH EYES, 1X/DAY (AT NIGHT)
     Route: 047
     Dates: start: 201412
  3. TIMOLOL MALEATE. [Concomitant]
     Active Substance: TIMOLOL MALEATE
     Indication: GLAUCOMA
     Dosage: ONE DROP IN BOTH EYES, 2X/DAY (EVERY 12 HOURS)
     Dates: start: 201412

REACTIONS (1)
  - Visual acuity reduced [Not Recovered/Not Resolved]
